FAERS Safety Report 5138915-1 (Version None)
Quarter: 2006Q4

REPORT INFORMATION
  Report Type: 
  Country: None (occurrence: None)
  Receive Date: 20061030
  Receipt Date: 20060516
  Transmission Date: 20070319
  Serious: No
  Sender: FDA-Public Use
  Company Number: US-GLAXOSMITHKLINE-A0605793A

PATIENT
  Age: 60 Year
  Sex: Female

DRUGS (5)
  1. ADVAIR HFA [Suspect]
     Indication: CHRONIC OBSTRUCTIVE PULMONARY DISEASE
     Dosage: 1PUFF TWICE PER DAY
     Route: 055
  2. SYNTHROID [Concomitant]
  3. EVISTA [Concomitant]
  4. MIACALCIN [Concomitant]
  5. ACIPHEX [Concomitant]

REACTIONS (6)
  - ALCOHOL INTOLERANCE [None]
  - BLOOD PRESSURE INCREASED [None]
  - DYSPHONIA [None]
  - HEADACHE [None]
  - NAUSEA [None]
  - WEIGHT INCREASED [None]
